FAERS Safety Report 10589157 (Version 2)
Quarter: 2014Q4

REPORT INFORMATION
  Report Type: Spontaneous
  Country: US (occurrence: US)
  Receive Date: 20141118
  Receipt Date: 20141128
  Transmission Date: 20150529
  Serious: Yes (Other)
  Sender: FDA-Public Use
  Company Number: US-BEH-2014046281

PATIENT
  Sex: Female

DRUGS (1)
  1. HIZENTRA [Suspect]
     Active Substance: HUMAN IMMUNOGLOBULIN G

REACTIONS (6)
  - Pneumonia [Recovering/Resolving]
  - Malaise [Recovering/Resolving]
  - Infectious mononucleosis [Recovering/Resolving]
  - Influenza like illness [Recovering/Resolving]
  - Epstein-Barr virus infection [Recovering/Resolving]
  - Human herpesvirus 6 infection [Recovering/Resolving]

NARRATIVE: CASE EVENT DATE: 201409
